FAERS Safety Report 7902246-4 (Version None)
Quarter: 2011Q4

REPORT INFORMATION
  Report Type: 
  Country: None (occurrence: None)
  Receive Date: 20111108
  Receipt Date: 20111026
  Transmission Date: 20120403
  Serious: Yes (Other)
  Sender: FDA-Public Use
  Company Number: TR-MYLANLABS-2011S1022422

PATIENT
  Age: 7 Year
  Sex: Female

DRUGS (4)
  1. VALPROIC ACID [Concomitant]
     Route: 065
  2. DESMOPRESSIN [Concomitant]
     Route: 065
  3. CARBAMAZEPINE [Concomitant]
     Route: 065
  4. LAMOTRIGINE [Suspect]
     Indication: CONVULSION
     Route: 065

REACTIONS (1)
  - INAPPROPRIATE ANTIDIURETIC HORMONE SECRETION [None]
